FAERS Safety Report 5814601-7 (Version None)
Quarter: 2008Q3

REPORT INFORMATION
  Report Type: 
  Country: None (occurrence: None)
  Receive Date: 20080718
  Receipt Date: 20071128
  Transmission Date: 20090109
  Serious: No
  Sender: FDA-Public Use
  Company Number: US-KINGPHARMUSA00001-K200701532

PATIENT

DRUGS (6)
  1. LEVOXYL [Suspect]
     Indication: THYROIDECTOMY
     Dosage: 125 MCG, QD
     Route: 048
     Dates: start: 20060101, end: 20070901
  2. LEVOXYL [Suspect]
     Dosage: 112 MCG, QD
     Route: 048
     Dates: start: 20070901
  3. TRAZODONE HCL [Concomitant]
  4. LORAZEPAM [Concomitant]
     Indication: ANXIETY
  5. DIOVAN /01319601/ [Concomitant]
     Indication: BLOOD PRESSURE
  6. PREMPRO [Concomitant]
     Indication: HORMONE REPLACEMENT THERAPY

REACTIONS (2)
  - BURNING SENSATION [None]
  - DYSURIA [None]
